FAERS Safety Report 9013943 (Version 1)
Quarter: 2013Q1

REPORT INFORMATION
  Report Type: Spontaneous
  Country: US (occurrence: None)
  Receive Date: 20130109
  Receipt Date: 20130109
  Transmission Date: 20140127
  Serious: Yes (Life-Threatening)
  Sender: FDA-Public Use
  Company Number: None

PATIENT
  Age: 39 Year
  Sex: Female
  Weight: 84.9 kg

DRUGS (1)
  1. SPRINTEC, 0.25-35 MG, TEVA PHARMACEUTICALS [Suspect]
     Indication: CONTRACEPTION
     Route: 048

REACTIONS (2)
  - Acute myocardial infarction [None]
  - Coronary artery occlusion [None]
